FAERS Safety Report 24129325 (Version 2)
Quarter: 2024Q3

REPORT INFORMATION
  Report Type: Spontaneous
  Country: US (occurrence: US)
  Receive Date: 20240723
  Receipt Date: 20240723
  Transmission Date: 20241017
  Serious: Yes (Death, Hospitalization, Other)
  Sender: GILEAD
  Company Number: US-GILEAD-2024-0681537

PATIENT
  Age: 75 Year
  Sex: Male

DRUGS (2)
  1. TECARTUS [Suspect]
     Active Substance: BREXUCABTAGENE AUTOLEUCEL
     Indication: Mantle cell lymphoma
     Dosage: UNK
     Route: 042
     Dates: start: 20240618, end: 20240618
  2. MIDODRINE [Concomitant]
     Active Substance: MIDODRINE

REACTIONS (6)
  - Shock [Fatal]
  - Delirium [Unknown]
  - Hypoxia [Unknown]
  - Hypotension [Unknown]
  - Acute kidney injury [Unknown]
  - Blood lactic acid increased [Unknown]

NARRATIVE: CASE EVENT DATE: 20240618
